FAERS Safety Report 6942208-7 (Version None)
Quarter: 2010Q3

REPORT INFORMATION
  Report Type: 
  Country: None (occurrence: None)
  Receive Date: 20100820
  Receipt Date: 20100811
  Transmission Date: 20110219
  Serious: Yes (Other)
  Sender: FDA-Public Use
  Company Number: 2010US002699

PATIENT
  Age: 44 Year
  Sex: Male
  Weight: 75 kg

DRUGS (4)
  1. PROGRAF [Suspect]
     Indication: LIVER TRANSPLANT
     Dosage: 0.5 MG, BID, ORAL
     Route: 048
     Dates: start: 19980411, end: 20100509
  2. NORVASC [Concomitant]
  3. CELLCEPT [Concomitant]
  4. SOLU-MEDROL [Concomitant]

REACTIONS (5)
  - COLECTOMY [None]
  - COLOSTOMY [None]
  - LIVER TRANSPLANT REJECTION [None]
  - RENAL IMPAIRMENT [None]
  - WOUND INFECTION STAPHYLOCOCCAL [None]
